FAERS Safety Report 17158193 (Version 5)
Quarter: 2020Q2

REPORT INFORMATION
  Report Type: Spontaneous
  Country: US (occurrence: US)
  Receive Date: 20191216
  Receipt Date: 20200403
  Transmission Date: 20200713
  Serious: Yes (Hospitalization, Other)
  Sender: FDA-Public Use
  Company Number: US-BAYER-2019-221039

PATIENT
  Age: 14 Year
  Sex: Male

DRUGS (7)
  1. KOGENATE FS [Suspect]
     Active Substance: ANTIHEMOPHILIC FACTOR, HUMAN RECOMBINANT
     Indication: FACTOR VIII DEFICIENCY
     Dosage: 1300 IU, QD FOR BLEEDING PRN
     Route: 042
     Dates: start: 201312
  2. KOGENATE FS [Suspect]
     Active Substance: ANTIHEMOPHILIC FACTOR, HUMAN RECOMBINANT
     Indication: FACTOR VIII DEFICIENCY
     Dosage: 1100-1500 UNITS, BIW
     Route: 042
     Dates: start: 20090827, end: 202003
  3. KOGENATE FS [Suspect]
     Active Substance: ANTIHEMOPHILIC FACTOR, HUMAN RECOMBINANT
     Indication: FACTOR VIII DEFICIENCY
     Dosage: ADDITIONAL DOSE TREATED ACTIVE BLEED
     Dates: start: 202001, end: 202001
  4. KOGENATE FS [Suspect]
     Active Substance: ANTIHEMOPHILIC FACTOR, HUMAN RECOMBINANT
     Indication: HAEMORRHAGE
     Dosage: 1300 IU, BIW
     Route: 042
     Dates: start: 201312
  5. KOGENATE FS [Suspect]
     Active Substance: ANTIHEMOPHILIC FACTOR, HUMAN RECOMBINANT
     Indication: FACTOR VIII DEFICIENCY
     Dosage: 1 DF (1300-1500 U), TIW
     Route: 042
     Dates: start: 201612
  6. KOGENATE FS [Suspect]
     Active Substance: ANTIHEMOPHILIC FACTOR, HUMAN RECOMBINANT
     Indication: FACTOR VIII DEFICIENCY
     Dosage: 1 DF (1300-1500 U), PRN FOR BLEEDING
     Route: 042
     Dates: start: 201612
  7. KOGENATE FS [Suspect]
     Active Substance: ANTIHEMOPHILIC FACTOR, HUMAN RECOMBINANT
     Indication: FACTOR VIII DEFICIENCY
     Dosage: 1 DF, ONCE FOR ELBOW BLEEDING
     Dates: start: 201910, end: 201910

REACTIONS (6)
  - Haemarthrosis [Recovered/Resolved]
  - Haemarthrosis [None]
  - Arthralgia [None]
  - Haemarthrosis [Recovered/Resolved]
  - Muscle haemorrhage [None]
  - Muscle haemorrhage [None]

NARRATIVE: CASE EVENT DATE: 201910
